FAERS Safety Report 6382012-4 (Version None)
Quarter: 2009Q3

REPORT INFORMATION
  Report Type: 
  Country: None (occurrence: None)
  Receive Date: 20090925
  Receipt Date: 20090911
  Transmission Date: 20100115
  Serious: Yes (Other)
  Sender: FDA-Public Use
  Company Number: MC200900332

PATIENT

DRUGS (1)
  1. CLEVIPREX [Suspect]

REACTIONS (2)
  - RESPIRATORY GAS EXCHANGE DISORDER [None]
  - VASODILATATION [None]
